FAERS Safety Report 25671149 (Version 1)
Quarter: 2025Q3

REPORT INFORMATION
  Report Type: Spontaneous
  Country: EU (occurrence: EU)
  Receive Date: 20250812
  Receipt Date: 20250812
  Transmission Date: 20251020
  Serious: Yes (Hospitalization)
  Sender: ELI LILLY AND COMPANY
  Company Number: EU-ELI_LILLY_AND_COMPANY-BE202508005118

PATIENT
  Age: 28 Year
  Sex: Female
  Weight: 130 kg

DRUGS (1)
  1. TRULICITY [Suspect]
     Active Substance: DULAGLUTIDE
     Indication: Product used for unknown indication
     Route: 030

REACTIONS (2)
  - Intentional self-injury [Unknown]
  - Incorrect route of product administration [Unknown]
